FAERS Safety Report 23757130 (Version 2)
Quarter: 2024Q2

REPORT INFORMATION
  Report Type: Spontaneous
  Country: JP (occurrence: JP)
  Receive Date: 20240418
  Receipt Date: 20240626
  Transmission Date: 20240716
  Serious: Yes (Hospitalization)
  Sender: FDA-Public Use
  Company Number: JP-RIGEL Pharmaceuticals, INC-2024FOS000451

PATIENT
  Age: 7 Decade
  Sex: Male

DRUGS (5)
  1. TAVALISSE [Suspect]
     Active Substance: FOSTAMATINIB
     Dosage: UNK
     Route: 048
  2. TAVALISSE [Suspect]
     Active Substance: FOSTAMATINIB
     Dosage: UNK, INCREASED DOSE
     Route: 048
  3. TAVALISSE [Suspect]
     Active Substance: FOSTAMATINIB
     Dosage: 200 003
     Route: 048
  4. TAVALISSE [Suspect]
     Active Substance: FOSTAMATINIB
     Indication: Immune thrombocytopenia
  5. ELTROMBOPAG OLAMINE [Concomitant]
     Active Substance: ELTROMBOPAG OLAMINE
     Indication: Product used for unknown indication
     Dosage: UNK
     Route: 048

REACTIONS (2)
  - Fall [Recovered/Resolved]
  - Blood pressure increased [Recovering/Resolving]
